FAERS Safety Report 16955647 (Version 3)
Quarter: 2022Q2

REPORT INFORMATION
  Report Type: Spontaneous
  Country: US (occurrence: US)
  Receive Date: 20191024
  Receipt Date: 20220518
  Transmission Date: 20220721
  Serious: No
  Sender: FDA-Public Use
  Company Number: US-PFIZER INC-2019459284

PATIENT
  Age: 63 Year
  Sex: Female
  Weight: 72.57 kg

DRUGS (1)
  1. BENZONATATE [Suspect]
     Active Substance: BENZONATATE
     Dosage: UNK

REACTIONS (1)
  - Drug ineffective [Unknown]
